FAERS Safety Report 14310672 (Version 1)
Quarter: 2017Q4

REPORT INFORMATION
  Report Type: Spontaneous
  Country: US (occurrence: US)
  Receive Date: 20171220
  Receipt Date: 20171220
  Transmission Date: 20180321
  Serious: No
  Sender: FDA-Public Use
  Company Number: US-B.I. PHARMACEUTICALS,INC./RIDGEFIELD-2017-BI-067079

PATIENT
  Sex: Male

DRUGS (1)
  1. COMBIVENT [Suspect]
     Active Substance: ALBUTEROL SULFATE\IPRATROPIUM BROMIDE
     Indication: ASTHMA
     Dosage: 2 INHALATIONS BID;STRENGTH:20 MCG / 100 MCG;FORM: INHALATION SPRAY, ACTION TAKEN: DOSE NOT CHANGED
     Route: 055
     Dates: start: 20171212

REACTIONS (1)
  - Off label use [Unknown]
